FAERS Safety Report 7526586-6 (Version None)
Quarter: 2011Q2

REPORT INFORMATION
  Report Type: 
  Country: None (occurrence: None)
  Receive Date: 20110527
  Receipt Date: 20110518
  Transmission Date: 20111010
  Serious: Yes (Hospitalization)
  Sender: FDA-Public Use
  Company Number: DKLU1070744

PATIENT
  Sex: Female

DRUGS (1)
  1. SABRIL [Suspect]
     Indication: INFANTILE SPASMS

REACTIONS (5)
  - MALABSORPTION [None]
  - LYMPHANGIECTASIA [None]
  - PROTEIN-LOSING GASTROENTEROPATHY [None]
  - HYPOALBUMINAEMIA [None]
  - IMMUNODEFICIENCY [None]
